FAERS Safety Report 25886390 (Version 1)
Quarter: 2025Q4

REPORT INFORMATION
  Report Type: Spontaneous
  Country: EU (occurrence: EU)
  Receive Date: 20251006
  Receipt Date: 20251006
  Transmission Date: 20260118
  Serious: Yes (Hospitalization, Other)
  Sender: AMGEN
  Company Number: EU-AMGEN-ITASP2025194863

PATIENT
  Age: 59 Year
  Sex: Male

DRUGS (10)
  1. ECULIZUMAB [Suspect]
     Active Substance: ECULIZUMAB
     Indication: Atypical haemolytic uraemic syndrome
     Dosage: 900 MILLIGRAM, QWK
     Route: 065
     Dates: start: 2023
  2. METHYLPREDNISOLONE [Concomitant]
     Active Substance: METHYLPREDNISOLONE
     Indication: Atypical haemolytic uraemic syndrome
     Dosage: 500 MILLIGRAM, QD (FOR THREE DAYS)
     Route: 040
     Dates: start: 2023
  3. PREDNISOLONE [Concomitant]
     Active Substance: PREDNISOLONE
     Indication: Atypical haemolytic uraemic syndrome
     Dosage: 1 MILLIGRAM/KILOGRAM, QD
     Dates: start: 2023
  4. HYDROXYCHLOROQUINE [Concomitant]
     Active Substance: HYDROXYCHLOROQUINE
     Indication: Atypical haemolytic uraemic syndrome
     Dosage: 400 MILLIGRAM, QD
     Dates: start: 2023, end: 2023
  5. HYDROXYCHLOROQUINE [Concomitant]
     Active Substance: HYDROXYCHLOROQUINE
     Indication: Systemic lupus erythematosus
     Dosage: 5 MILLIGRAM/KILOGRAM, QD
     Dates: start: 2023
  6. MYCOPHENOLATE MOFETIL [Concomitant]
     Active Substance: MYCOPHENOLATE MOFETIL
     Indication: Atypical haemolytic uraemic syndrome
     Dosage: 1000 MILLIGRAM/KILOGRAM
     Dates: start: 2023
  7. MYCOPHENOLATE MOFETIL [Concomitant]
     Active Substance: MYCOPHENOLATE MOFETIL
     Indication: Renal impairment
  8. PREDNISONE [Concomitant]
     Active Substance: PREDNISONE
     Indication: Atypical haemolytic uraemic syndrome
     Dosage: UNK (LOW-TO-MEDIUM DOSES)
  9. PREDNISONE [Concomitant]
     Active Substance: PREDNISONE
     Indication: Systemic lupus erythematosus
     Dosage: 5 MILLIGRAM, QD
     Dates: start: 2023
  10. PREDNISONE [Concomitant]
     Active Substance: PREDNISONE
     Dosage: UNK
     Dates: end: 202408

REACTIONS (4)
  - End stage renal disease [Recovering/Resolving]
  - Clostridium colitis [Unknown]
  - COVID-19 [Unknown]
  - Therapy non-responder [Unknown]

NARRATIVE: CASE EVENT DATE: 20230101
